FAERS Safety Report 15662693 (Version 1)
Quarter: 2018Q4

REPORT INFORMATION
  Report Type: Spontaneous
  Country: US (occurrence: US)
  Receive Date: 20181127
  Receipt Date: 20181127
  Transmission Date: 20190205
  Serious: Yes (Other)
  Sender: FDA-Public Use
  Company Number: US-SA-2018SA044895

PATIENT
  Age: 45 Year
  Sex: Female

DRUGS (5)
  1. TAXOTERE [Suspect]
     Active Substance: DOCETAXEL
     Indication: BREAST CANCER
     Dosage: UNK UNK,UNK
     Route: 042
     Dates: start: 200905, end: 200905
  2. NADOLOL. [Concomitant]
     Active Substance: NADOLOL
  3. NEOSAR [Concomitant]
     Active Substance: CYCLOPHOSPHAMIDE
  4. TAXOTERE [Suspect]
     Active Substance: DOCETAXEL
     Dosage: UNK UNK,UNK
     Route: 042
     Dates: start: 20090910, end: 20090910
  5. DOXORUBICIN [Concomitant]
     Active Substance: DOXORUBICIN

REACTIONS (6)
  - Pain [Unknown]
  - Psychological trauma [Unknown]
  - Anxiety [Unknown]
  - Alopecia [Not Recovered/Not Resolved]
  - Emotional distress [Unknown]
  - Impaired quality of life [Unknown]

NARRATIVE: CASE EVENT DATE: 200905
